FAERS Safety Report 7229747-9 (Version None)
Quarter: 2011Q1

REPORT INFORMATION
  Report Type: 
  Country: None (occurrence: None)
  Receive Date: 20110117
  Receipt Date: 20110111
  Transmission Date: 20110831
  Serious: Yes (Other)
  Sender: FDA-Public Use
  Company Number: US-ABBOTT-11P-163-0696574-00

PATIENT
  Sex: Male
  Weight: 136.2 kg

DRUGS (7)
  1. METFORMIN HCL [Concomitant]
     Indication: DIABETES MELLITUS
     Dosage: UP TO 2 TABS AS NEEDED
     Route: 048
  2. HUMIRA [Suspect]
     Indication: CROHN'S DISEASE
     Route: 058
     Dates: start: 20090101, end: 20101101
  3. ZOCOR [Concomitant]
     Indication: BLOOD CHOLESTEROL INCREASED
     Route: 048
  4. HUMULIN 70/30 [Concomitant]
     Indication: DIABETES MELLITUS
     Dosage: PER SLIDING SCALE
     Route: 058
  5. ACTOS [Concomitant]
     Indication: DIABETES MELLITUS
     Route: 048
  6. GLYBURIDE [Concomitant]
     Indication: DIABETES MELLITUS
     Route: 048
  7. JANUVIA [Concomitant]
     Indication: DIABETES MELLITUS
     Route: 048

REACTIONS (6)
  - BURSITIS [None]
  - STAPHYLOCOCCAL INFECTION [None]
  - LOCAL SWELLING [None]
  - ARTHROPATHY [None]
  - ERYTHEMA [None]
  - FEELING HOT [None]
